FAERS Safety Report 9927703 (Version 1)
Quarter: 2014Q1

REPORT INFORMATION
  Report Type: Report from Study
  Country: US (occurrence: US)
  Receive Date: 20140227
  Receipt Date: 20140227
  Transmission Date: 20141002
  Serious: Yes (Hospitalization)
  Sender: FDA-Public Use
  Company Number: US-ROCHE-1334289

PATIENT
  Age: 38 Year
  Sex: Male

DRUGS (8)
  1. LUCENTIS [Suspect]
     Indication: DIABETIC RETINAL OEDEMA
     Route: 050
  2. LUCENTIS [Suspect]
     Route: 050
  3. LUCENTIS [Suspect]
     Route: 050
  4. AVASTIN [Suspect]
     Indication: DIABETIC RETINAL OEDEMA
     Dosage: OD
     Route: 065
     Dates: start: 20111007
  5. METFORMIN [Concomitant]
     Route: 065
  6. GLYBURIDE [Concomitant]
  7. JANUVIA [Concomitant]
  8. ACTOS [Concomitant]

REACTIONS (11)
  - Localised infection [Unknown]
  - Vitreous floaters [Unknown]
  - Photopsia [Unknown]
  - Visual acuity reduced [Unknown]
  - Cataract [Unknown]
  - Retinal disorder [Unknown]
  - Retinal exudates [Unknown]
  - Retinal haemorrhage [Unknown]
  - Visual impairment [Unknown]
  - Arteriosclerotic retinopathy [Unknown]
  - Halo vision [Unknown]
